FAERS Safety Report 17090914 (Version 2)
Quarter: 2019Q4

REPORT INFORMATION
  Report Type: Spontaneous
  Country: SE (occurrence: SE)
  Receive Date: 20191129
  Receipt Date: 20191218
  Transmission Date: 20200122
  Serious: Yes (Other)
  Sender: FDA-Public Use
  Company Number: SE-SA-2019SA325986

PATIENT
  Age: 72 Year
  Sex: Female

DRUGS (5)
  1. CANDESARTAN. [Concomitant]
     Active Substance: CANDESARTAN
     Dosage: UNK
     Dates: start: 201204
  2. PRALUENT [Suspect]
     Active Substance: ALIROCUMAB
     Indication: MYOCARDIAL INFARCTION
     Dosage: 75 MG, QOW
     Dates: start: 20191004, end: 20191114
  3. LEVAXIN [Concomitant]
     Active Substance: LEVOTHYROXINE SODIUM
     Dosage: UNK
  4. PRALUENT [Suspect]
     Active Substance: ALIROCUMAB
     Indication: LOW DENSITY LIPOPROTEIN INCREASED
     Dosage: 75 MG, QOW
     Dates: start: 20190115, end: 20190611
  5. TROMBYL [Concomitant]
     Active Substance: ASPIRIN
     Dosage: UNK
     Dates: start: 201204

REACTIONS (3)
  - Condition aggravated [Recovering/Resolving]
  - Rash [Recovering/Resolving]
  - Cutaneous lupus erythematosus [Recovering/Resolving]

NARRATIVE: CASE EVENT DATE: 20190611
